FAERS Safety Report 11397574 (Version 2)
Quarter: 2015Q4

REPORT INFORMATION
  Report Type: Spontaneous
  Country: US (occurrence: US)
  Receive Date: 20150819
  Receipt Date: 20151216
  Transmission Date: 20160304
  Serious: Yes (Hospitalization, Other)
  Sender: FDA-Public Use
  Company Number: PHEH2015US015432

PATIENT
  Age: 52 Year
  Sex: Female

DRUGS (5)
  1. LAMICTAL [Suspect]
     Active Substance: LAMOTRIGINE
     Indication: SEIZURE
     Route: 065
  2. ZONISAMIDE. [Suspect]
     Active Substance: ZONISAMIDE
     Indication: SEIZURE
     Route: 065
  3. VIMPAT [Suspect]
     Active Substance: LACOSAMIDE
     Indication: SEIZURE
     Route: 065
  4. NEURONTIN [Suspect]
     Active Substance: GABAPENTIN
     Indication: SEIZURE
     Route: 065
  5. TRILEPTAL [Suspect]
     Active Substance: OXCARBAZEPINE
     Indication: SEIZURE
     Route: 065

REACTIONS (33)
  - Seizure [Unknown]
  - Pollakiuria [Unknown]
  - Tremor [Unknown]
  - Alopecia [Unknown]
  - Asthenia [Unknown]
  - Strabismus [Unknown]
  - Pallor [Unknown]
  - Cognitive disorder [Recovering/Resolving]
  - Vomiting [Unknown]
  - Depression [Unknown]
  - Visual impairment [Unknown]
  - Chest pain [Unknown]
  - Anuria [Unknown]
  - Insomnia [Unknown]
  - Post procedural complication [Unknown]
  - Abdominal discomfort [Unknown]
  - Nausea [Unknown]
  - Haemorrhage [Unknown]
  - Face injury [Unknown]
  - Muscular weakness [Unknown]
  - Hyperhidrosis [Unknown]
  - Coordination abnormal [Unknown]
  - Pain [Unknown]
  - Gait disturbance [Unknown]
  - Urine abnormality [Unknown]
  - Menopause [Unknown]
  - Dizziness [Unknown]
  - Fall [Unknown]
  - Myocardial infarction [Unknown]
  - Contusion [Unknown]
  - Confusional state [Unknown]
  - Fatigue [Unknown]
  - Diplopia [Unknown]

NARRATIVE: CASE EVENT DATE: 2010
